FAERS Safety Report 21702014 (Version 1)
Quarter: 2022Q4

REPORT INFORMATION
  Report Type: Spontaneous
  Country: US (occurrence: US)
  Receive Date: 20221208
  Receipt Date: 20221208
  Transmission Date: 20230113
  Serious: No
  Sender: FDA-Public Use
  Company Number: US-MYLANLABS-2022M1135765

PATIENT
  Sex: Female
  Weight: 68.04 kg

DRUGS (3)
  1. LEVOTHYROXINE [Suspect]
     Active Substance: LEVOTHYROXINE
     Indication: Thyroid disorder
     Dosage: 50 MICROGRAM, AM(ONCE A DAY EVERY MORNING)
     Route: 065
     Dates: start: 2015
  2. LEVOTHYROXINE [Suspect]
     Active Substance: LEVOTHYROXINE
     Dosage: 88 MICROGRAM, AM(ONCE A DAY EVERY MORNING)
     Route: 065
     Dates: start: 2015
  3. LEVOTHYROXINE [Suspect]
     Active Substance: LEVOTHYROXINE
     Dosage: 100 MICROGRAM, AM(ONCE A DAY EVERY MORNING)
     Route: 065
     Dates: start: 2015

REACTIONS (4)
  - Bone pain [Recovered/Resolved]
  - Hot flush [Recovered/Resolved]
  - Insomnia [Recovered/Resolved]
  - Fatigue [Recovered/Resolved]

NARRATIVE: CASE EVENT DATE: 20150101
